FAERS Safety Report 8352871-4 (Version None)
Quarter: 2012Q2

REPORT INFORMATION
  Report Type: 
  Country: None (occurrence: None)
  Receive Date: 20120511
  Receipt Date: 20120430
  Transmission Date: 20120825
  Serious: Yes (Hospitalization, Other)
  Sender: FDA-Public Use
  Company Number: US-ELI_LILLY_AND_COMPANY-US201204007970

PATIENT
  Age: 60 Year
  Sex: Female

DRUGS (11)
  1. ASMANEX TWISTHALER [Concomitant]
  2. ACIPHEX [Concomitant]
  3. ALBUTEROL [Concomitant]
     Dosage: UNK, PRN
  4. CYMBALTA [Suspect]
     Indication: DEPRESSION
     Dosage: 30 MG, QD
     Dates: start: 20110401
  5. TUMS                               /00193601/ [Concomitant]
  6. SINGULAIR [Concomitant]
  7. METOZOLV [Concomitant]
  8. XANAX [Concomitant]
  9. ZANTAC [Concomitant]
  10. CYMBALTA [Suspect]
     Dosage: 60 MG, QD
     Dates: end: 20111201
  11. DEXTROAMPHETAMINE [Concomitant]

REACTIONS (26)
  - BLOOD BILIRUBIN INCREASED [None]
  - CHROMATURIA [None]
  - NAUSEA [None]
  - WEIGHT INCREASED [None]
  - GASTRITIS [None]
  - HIATUS HERNIA [None]
  - FLATULENCE [None]
  - DYSPHAGIA [None]
  - CHOLESTASIS [None]
  - POLYP COLORECTAL [None]
  - ABDOMINAL PAIN UPPER [None]
  - DYSPEPSIA [None]
  - ABDOMINAL PAIN [None]
  - VOMITING [None]
  - ASPARTATE AMINOTRANSFERASE INCREASED [None]
  - BLOOD UREA INCREASED [None]
  - PRURITUS [None]
  - PANCREATITIS ACUTE [None]
  - ABDOMINAL DISTENSION [None]
  - ORAL MUCOSAL BLISTERING [None]
  - CONSTIPATION [None]
  - ABNORMAL FAECES [None]
  - GASTROINTESTINAL INFLAMMATION [None]
  - SKIN ODOUR ABNORMAL [None]
  - APHAGIA [None]
  - ORAL DISCOMFORT [None]
